FAERS Safety Report 6661207-6 (Version None)
Quarter: 2010Q1

REPORT INFORMATION
  Report Type: 
  Country: None (occurrence: None)
  Receive Date: 20100331
  Receipt Date: 20100325
  Transmission Date: 20100710
  Serious: Yes (Hospitalization)
  Sender: FDA-Public Use
  Company Number: US-ROCHE-692621

PATIENT
  Sex: Female
  Weight: 44.1 kg

DRUGS (9)
  1. BEVACIZUMAB [Suspect]
     Indication: METASTATIC GASTRIC CANCER
     Route: 042
     Dates: start: 20090420, end: 20091214
  2. OXALIPLATIN [Suspect]
     Indication: METASTATIC GASTRIC CANCER
     Route: 042
     Dates: start: 20090420, end: 20091214
  3. CAPECITABINE [Suspect]
     Indication: DRUG USE FOR UNKNOWN INDICATION
     Dosage: DOSE: 1700 MG/M^2 (2500 MG), FREQUENCY: DAY
     Route: 048
     Dates: start: 20090420, end: 20091227
  4. OMEPRAZOLE [Concomitant]
  5. MARINOL [Concomitant]
  6. LASIX [Concomitant]
  7. POTASSIUM CHLORIDE [Concomitant]
  8. DEXAMETHASONE [Concomitant]
  9. COMPAZINE [Concomitant]

REACTIONS (3)
  - BACTERAEMIA [None]
  - DEEP VEIN THROMBOSIS [None]
  - PLEURAL EFFUSION [None]
